FAERS Safety Report 4439415-4 (Version None)
Quarter: 2004Q3

REPORT INFORMATION
  Report Type: 
  Country: None (occurrence: None)
  Receive Date: 20040728
  Receipt Date: 20040303
  Transmission Date: 20050211
  Serious: No
  Sender: FDA-Public Use
  Company Number: USA040360821

PATIENT
  Age: 11 Year
  Sex: Male
  Weight: 50 kg

DRUGS (1)
  1. STRATTERA [Suspect]
     Indication: DISTURBANCE IN ATTENTION
     Dosage: 40 MG/2 DAY
     Dates: start: 20030701

REACTIONS (3)
  - DRUG INEFFECTIVE [None]
  - FATIGUE [None]
  - PRESCRIBED OVERDOSE [None]
